FAERS Safety Report 7781697-5 (Version None)
Quarter: 2011Q3

REPORT INFORMATION
  Report Type: 
  Country: None (occurrence: None)
  Receive Date: 20110927
  Receipt Date: 20110923
  Transmission Date: 20111222
  Serious: Yes (Other)
  Sender: FDA-Public Use
  Company Number: US-GLAXOSMITHKLINE-A0725145A

PATIENT
  Age: 58 Year
  Sex: Male
  Weight: 100 kg

DRUGS (15)
  1. AVANDIA [Suspect]
     Indication: TYPE 2 DIABETES MELLITUS
     Dosage: 8MG PER DAY
     Route: 048
     Dates: start: 20050608, end: 20080408
  2. LIPITOR [Concomitant]
  3. PLAVIX [Concomitant]
  4. EZETIMIBE [Concomitant]
  5. NITROGLYCERIN [Concomitant]
  6. ATORVASTATIN [Concomitant]
  7. CLOPIDOGREL [Concomitant]
  8. LEVOTHYROXINE SODIUM [Concomitant]
  9. AVANDAMET [Suspect]
     Indication: DIABETES MELLITUS
     Route: 048
  10. ZOCOR [Concomitant]
  11. ZETIA [Concomitant]
  12. ASPIRIN [Concomitant]
  13. METFORMIN HCL [Concomitant]
  14. SIMVASTATIN [Concomitant]
  15. DILTIAZEM HCL [Concomitant]

REACTIONS (2)
  - HEART INJURY [None]
  - CARDIAC FAILURE CONGESTIVE [None]
